FAERS Safety Report 8140310-8 (Version None)
Quarter: 2012Q1

REPORT INFORMATION
  Report Type: 
  Country: None (occurrence: None)
  Receive Date: 20120216
  Receipt Date: 20120213
  Transmission Date: 20120608
  Serious: No
  Sender: FDA-Public Use
  Company Number: US-PFIZER INC-2012039848

PATIENT
  Sex: Male

DRUGS (2)
  1. SUTENT [Suspect]
     Indication: GASTROINTESTINAL STROMAL TUMOUR
     Dosage: 50 MG, UNK; 28 DAYS ACTIVE FOLLOWED BY 14 DAYS
     Dates: start: 20111226
  2. GLEEVEC [Suspect]
     Dosage: UNK
     Dates: start: 20080301, end: 20111212

REACTIONS (2)
  - MUSCULAR WEAKNESS [None]
  - TENDERNESS [None]
